FAERS Safety Report 4717872-3 (Version None)
Quarter: 2005Q3

REPORT INFORMATION
  Report Type: 
  Country: None (occurrence: None)
  Receive Date: 20050715
  Receipt Date: 20050331
  Transmission Date: 20060218
  Serious: Yes (Hospitalization)
  Sender: FDA-Public Use
  Company Number: 2005FR-00099

PATIENT
  Age: 45 Year
  Sex: Female
  Weight: 48 kg

DRUGS (4)
  1. RANITIDINE [Suspect]
  2. CLOZARIL [Concomitant]
  3. THYROXINE [Concomitant]
  4. FEMOSTON [Concomitant]

REACTIONS (2)
  - DIZZINESS [None]
  - MULTIPLE DRUG OVERDOSE ACCIDENTAL [None]
